FAERS Safety Report 8153534-0 (Version None)
Quarter: 2012Q1

REPORT INFORMATION
  Report Type: 
  Country: None (occurrence: None)
  Receive Date: 20120215
  Receipt Date: 20120127
  Transmission Date: 20120608
  Serious: Yes (Hospitalization)
  Sender: FDA-Public Use
  Company Number: 12-ADE-SU-0016-ACT

PATIENT
  Age: 80 Year
  Sex: Male

DRUGS (7)
  1. LOSARTAN POTASSIUM [Concomitant]
  2. H.P. ACTHAR GEL [Suspect]
     Indication: NEPHROTIC SYNDROME
     Dosage: 80 IU IM TWICE A WEEK
     Route: 030
     Dates: start: 20120101
  3. NIACIN [Concomitant]
  4. HYDRALAZINE HCL [Concomitant]
  5. LIPITOR [Concomitant]
  6. AMLODIPINE [Concomitant]
  7. FUROSEMIDE [Concomitant]

REACTIONS (1)
  - ACUTE MYOCARDIAL INFARCTION [None]
